FAERS Safety Report 5582987-7 (Version None)
Quarter: 2008Q1

REPORT INFORMATION
  Report Type: 
  Country: None (occurrence: None)
  Receive Date: 20080107
  Receipt Date: 20080102
  Transmission Date: 20080703
  Serious: Yes (Hospitalization, Other)
  Sender: FDA-Public Use
  Company Number: GB-JNJFOC-20060203365

PATIENT
  Sex: Female

DRUGS (11)
  1. REMICADE [Suspect]
     Route: 042
  2. REMICADE [Suspect]
     Route: 042
  3. REMICADE [Suspect]
     Route: 042
  4. REMICADE [Suspect]
     Route: 042
  5. REMICADE [Suspect]
     Indication: ANKYLOSING SPONDYLITIS
     Dosage: SECOND INFUSION.
     Route: 042
  6. REMICADE [Suspect]
     Indication: UVEITIS
     Dosage: FIRST INFUSION.
     Route: 042
  7. MTX [Concomitant]
     Route: 065
  8. PREDNISOLONE [Concomitant]
  9. PARACETOMOL [Concomitant]
     Route: 048
  10. OMEPRAZOLE [Concomitant]
     Route: 048
  11. TRAMADOL HCL [Concomitant]

REACTIONS (9)
  - ABDOMINAL PAIN UPPER [None]
  - ASTHMA [None]
  - BLOOD PRESSURE INCREASED [None]
  - CHEST DISCOMFORT [None]
  - DYSPNOEA [None]
  - INFUSION RELATED REACTION [None]
  - PHARYNGEAL OEDEMA [None]
  - TACHYCARDIA [None]
  - WHEEZING [None]
